FAERS Safety Report 9988066 (Version 1)
Quarter: 2014Q1

REPORT INFORMATION
  Report Type: Spontaneous
  Country: FR (occurrence: FR)
  Receive Date: 20140308
  Receipt Date: 20140308
  Transmission Date: 20141002
  Serious: Yes (Hospitalization)
  Sender: FDA-Public Use
  Company Number: FR-ROCHE-1360229

PATIENT
  Age: 73 Year
  Sex: Female

DRUGS (2)
  1. ROCEPHINE [Suspect]
     Indication: INFECTION
     Route: 042
  2. GENTAMYCIN [Suspect]
     Indication: PRODUCT USED FOR UNKNOWN INDICATION
     Route: 065
     Dates: start: 20140124, end: 20140127

REACTIONS (2)
  - Renal failure chronic [Not Recovered/Not Resolved]
  - Haemodialysis [Not Recovered/Not Resolved]
